FAERS Safety Report 7988255-8 (Version None)
Quarter: 2011Q4

REPORT INFORMATION
  Report Type: 
  Country: None (occurrence: None)
  Receive Date: 20111216
  Receipt Date: 20111208
  Transmission Date: 20120403
  Serious: Yes (Hospitalization)
  Sender: FDA-Public Use
  Company Number: US-JNJFOC-20111204895

PATIENT
  Sex: Female
  Weight: 36.6 kg

DRUGS (36)
  1. PEPTAMEN [Concomitant]
  2. PREVACID [Concomitant]
  3. LOPERAMIDE HCL [Concomitant]
  4. ACETAMINOPHEN [Concomitant]
  5. HYDROCORTISONE [Suspect]
     Indication: PRODUCT USED FOR UNKNOWN INDICATION
  6. ANTIBIOTICS [Concomitant]
     Indication: INFLAMMATORY BOWEL DISEASE
  7. MULTI-VITAMINS [Concomitant]
  8. ZINC SULFATE [Concomitant]
  9. MIDAZOLAM [Concomitant]
  10. LORAZEPAM [Concomitant]
  11. FISH OIL [Concomitant]
  12. KETOROLAC TROMETHAMINE [Concomitant]
  13. PREDNISONE [Suspect]
     Indication: PRODUCT USED FOR UNKNOWN INDICATION
  14. TPN [Concomitant]
  15. FOLIC ACID [Concomitant]
  16. BISACODYL [Concomitant]
  17. DIPHENHYDRAMINE HCL [Concomitant]
  18. PIPERACILLIN AND TAZOBACTAM [Concomitant]
  19. PANTOPRAZOLE [Concomitant]
  20. ADALIMUMAB [Suspect]
     Indication: CROHN'S DISEASE
     Dates: start: 20090218
  21. METHOTREXATE [Suspect]
     Indication: PRODUCT USED FOR UNKNOWN INDICATION
  22. IRON [Concomitant]
  23. ONDANSETRON [Concomitant]
  24. REMICADE [Suspect]
     Indication: CROHN'S DISEASE
     Route: 042
     Dates: start: 20080205, end: 20090114
  25. CIPROFLOXACIN [Suspect]
     Indication: PRODUCT USED FOR UNKNOWN INDICATION
  26. MORPHINE [Concomitant]
  27. VANCOMYCIN HYCHLORIDE [Concomitant]
  28. FENTANYL [Concomitant]
  29. MINERALS NOS [Concomitant]
  30. CHOLECALCIFEROL [Concomitant]
  31. DEXTRAN INJ [Concomitant]
     Route: 042
  32. NALBUPHINE [Concomitant]
  33. RANITIDINE [Concomitant]
  34. POLYETHYLENE GLYCOL [Concomitant]
  35. FLAGYL [Suspect]
     Indication: PRODUCT USED FOR UNKNOWN INDICATION
  36. CEFTRIAXONE [Concomitant]

REACTIONS (1)
  - CROHN'S DISEASE [None]
